FAERS Safety Report 20418476 (Version 1)
Quarter: 2022Q1

REPORT INFORMATION
  Report Type: Other
  Country: None (occurrence: US)
  Receive Date: 20220202
  Receipt Date: 20220202
  Transmission Date: 20220423
  Serious: No
  Sender: FDA-Public Use
  Company Number: US-Nova Laboratories Limited-2124550

PATIENT
  Age: 58 Year
  Sex: Male

DRUGS (2)
  1. PURIXAN [Suspect]
     Active Substance: MERCAPTOPURINE
     Indication: Crohn^s disease
  2. ALLOPURINOL [Suspect]
     Active Substance: ALLOPURINOL

REACTIONS (1)
  - Off label use [None]
